FAERS Safety Report 8768450 (Version 1)
Quarter: 2012Q4

REPORT INFORMATION
  Report Type: 
  Country: US (occurrence: US)
  Receive Date: 20120904
  Receipt Date: 20120904
  Transmission Date: 20130627
  Serious: Yes (Other)
  Sender: FDA-Public Use
  Company Number: US-AMGEN-USASP2012052573

PATIENT
  Age: 66 Year
  Sex: Male

DRUGS (1)
  1. ENBREL [Suspect]
     Indication: RHEUMATOID ARTHRITIS
     Dosage: 25 mg, 2 times/wk
     Route: 058
     Dates: start: 20000201

REACTIONS (7)
  - Basal cell carcinoma [Recovered/Resolved]
  - Rheumatoid arthritis [Not Recovered/Not Resolved]
  - Inguinal hernia [Recovered/Resolved]
  - Impaired healing [Recovered/Resolved]
  - Night sweats [Not Recovered/Not Resolved]
  - Contusion [Not Recovered/Not Resolved]
  - Muscle spasms [Not Recovered/Not Resolved]
